FAERS Safety Report 8838456 (Version 1)
Quarter: 2012Q4

REPORT INFORMATION
  Report Type: 
  Country: US (occurrence: US)
  Receive Date: 20121012
  Receipt Date: 20121012
  Transmission Date: 20130627
  Serious: Yes (Hospitalization, Other)
  Sender: FDA-Public Use
  Company Number: US-ROCHE-GNE091028

PATIENT
  Age: 8 Year
  Sex: Male
  Weight: 24.5 kg

DRUGS (3)
  1. NUTROPIN [Suspect]
     Indication: GROWTH HORMONE DEFICIENCY
     Dosage: 0.3 mg/kg/week
     Route: 058
     Dates: start: 19961224
  2. NUTROPIN [Suspect]
     Dosage: Dose reduced by 50%
     Route: 058
  3. NUTROPIN [Suspect]
     Dosage: 0.18 mg/kg/week
     Route: 058

REACTIONS (6)
  - Intracranial pressure increased [Recovered/Resolved]
  - Optic atrophy [Unknown]
  - Headache [Unknown]
  - Vomiting [Unknown]
  - Nausea [Unknown]
  - Fatigue [Unknown]
